FAERS Safety Report 20526879 (Version 3)
Quarter: 2022Q2

REPORT INFORMATION
  Report Type: Spontaneous
  Country: CA (occurrence: CA)
  Receive Date: 20220228
  Receipt Date: 20220527
  Transmission Date: 20220720
  Serious: Yes (Other)
  Sender: FDA-Public Use
  Company Number: CA-TAKEDA-2022TUS011407

PATIENT
  Age: 35 Year
  Sex: Female

DRUGS (16)
  1. PANTOPRAZOLE SODIUM [Suspect]
     Active Substance: PANTOPRAZOLE SODIUM
     Dosage: UNK
     Route: 065
  2. FAMOTIDINE [Suspect]
     Active Substance: FAMOTIDINE
     Dosage: UNK
     Route: 065
  3. MOTILIUM [Suspect]
     Active Substance: DOMPERIDONE
     Dosage: UNK
     Route: 065
     Dates: end: 2021
  4. KEYTRUDA [Suspect]
     Active Substance: PEMBROLIZUMAB
     Indication: Primary mediastinal large B-cell lymphoma recurrent
     Dosage: 200 MILLIGRAM, Q3WEEKS
     Route: 065
     Dates: start: 20210916, end: 20210916
  5. KEYTRUDA [Suspect]
     Active Substance: PEMBROLIZUMAB
     Dosage: 200 MILLIGRAM, Q3WEEKS
     Route: 065
     Dates: start: 20211006, end: 20211006
  6. KEYTRUDA [Suspect]
     Active Substance: PEMBROLIZUMAB
     Dosage: 200 MILLIGRAM, Q3WEEKS
     Route: 065
     Dates: start: 20211027, end: 20211027
  7. KEYTRUDA [Suspect]
     Active Substance: PEMBROLIZUMAB
     Dosage: 200 MILLIGRAM, Q3WEEKS
     Route: 065
     Dates: start: 20220302, end: 20220302
  8. KEYTRUDA [Suspect]
     Active Substance: PEMBROLIZUMAB
     Dosage: 200 MILLIGRAM, Q3WEEKS
     Route: 065
  9. PEPCID [ALUMINIUM HYDROXIDE;MAGNESIUM TRISILICATE;SODIUM ALGINATE] [Concomitant]
     Dosage: UNK
     Route: 065
  10. VITAMIN D3 [Concomitant]
     Active Substance: CHOLECALCIFEROL
     Dosage: UNK
     Route: 065
  11. ATIVAN [Concomitant]
     Active Substance: LORAZEPAM
     Dosage: UNK
     Route: 065
  12. CETIRIZINE HYDROCHLORIDE [Concomitant]
     Active Substance: CETIRIZINE HYDROCHLORIDE
     Dosage: UNK
     Route: 065
  13. ELIQUIS [Concomitant]
     Active Substance: APIXABAN
     Dosage: UNK
     Route: 065
  14. BACTRIM [Concomitant]
     Active Substance: SULFAMETHOXAZOLE\TRIMETHOPRIM
     Dosage: UNK
     Route: 065
  15. TYLENOL [Concomitant]
     Active Substance: ACETAMINOPHEN
     Dosage: UNK
     Route: 065
  16. METOCLOPRAMIDE [Concomitant]
     Active Substance: METOCLOPRAMIDE
     Dosage: UNK
     Route: 065

REACTIONS (47)
  - Cough [Recovered/Resolved]
  - Diarrhoea [Recovered/Resolved]
  - Dry skin [Recovered/Resolved]
  - Dyspnoea [Recovered/Resolved]
  - Epigastric discomfort [Recovered/Resolved]
  - Faeces hard [Not Recovered/Not Resolved]
  - Neutropenia [Recovered/Resolved]
  - Pulmonary oedema [Recovered/Resolved]
  - Pyrexia [Recovered/Resolved]
  - Hypoxia [Unknown]
  - Pneumothorax [Unknown]
  - Malignant neoplasm progression [Unknown]
  - Depressed mood [Unknown]
  - Pleural effusion [Unknown]
  - Pulmonary mass [Unknown]
  - Atelectasis [Unknown]
  - Poor venous access [Unknown]
  - Blood lactate dehydrogenase abnormal [Unknown]
  - Blood alkaline phosphatase abnormal [Unknown]
  - Glomerular filtration rate abnormal [Unknown]
  - Blood creatinine abnormal [Unknown]
  - Haemoglobin abnormal [Unknown]
  - Unevaluable investigation [Unknown]
  - Weight increased [Unknown]
  - Therapy partial responder [Unknown]
  - Lymphadenopathy [Unknown]
  - Faeces discoloured [Unknown]
  - Chromaturia [Unknown]
  - Productive cough [Unknown]
  - Hyperphagia [Unknown]
  - Dyspnoea exertional [Unknown]
  - Throat irritation [Recovered/Resolved]
  - Oropharyngeal pain [Recovered/Resolved]
  - Vascular access site complication [Unknown]
  - Arthralgia [Unknown]
  - Malaise [Unknown]
  - Weight decreased [Unknown]
  - Musculoskeletal stiffness [Unknown]
  - Pain [Recovering/Resolving]
  - Abdominal pain upper [Recovering/Resolving]
  - Vomiting [Recovered/Resolved]
  - Fatigue [Unknown]
  - Back pain [Unknown]
  - Constipation [Unknown]
  - Nausea [Recovered/Resolved]
  - Decreased appetite [Unknown]
  - Inappropriate schedule of product administration [Unknown]

NARRATIVE: CASE EVENT DATE: 20210101
